FAERS Safety Report 4849955-1 (Version None)
Quarter: 2005Q4

REPORT INFORMATION
  Report Type: 
  Country: None (occurrence: None)
  Receive Date: 20051101
  Receipt Date: 20050517
  Transmission Date: 20060501
  Serious: Yes (Life-Threatening, Hospitalization)
  Sender: FDA-Public Use
  Company Number: 200510261BCA

PATIENT
  Age: 10 Year
  Sex: Male
  Weight: 41.6 kg

DRUGS (2)
  1. GAMUNEX [Suspect]
     Indication: THROMBOCYTOPENIA
     Dosage: 180 ML, TOTAL DAILY, INTRAVENOUS
     Route: 042
     Dates: start: 20050506
  2. PREDNISONE [Concomitant]

REACTIONS (5)
  - ANAPHYLACTIC REACTION [None]
  - CHEST DISCOMFORT [None]
  - DYSPNOEA [None]
  - THROAT IRRITATION [None]
  - WHEEZING [None]
